FAERS Safety Report 10381803 (Version 2)
Quarter: 2014Q3

REPORT INFORMATION
  Report Type: Report from Study
  Country: US (occurrence: US)
  Receive Date: 20140813
  Receipt Date: 20140821
  Transmission Date: 20150326
  Serious: Yes (Other)
  Sender: FDA-Public Use
  Company Number: US-SA-2014SA107527

PATIENT
  Age: 63 Year
  Sex: Female

DRUGS (3)
  1. SOLOSTAR [Concomitant]
     Active Substance: DEVICE
  2. NOVOLOG [Suspect]
     Active Substance: INSULIN ASPART
     Indication: PRODUCT USED FOR UNKNOWN INDICATION
     Route: 065
  3. LANTUS SOLOSTAR [Suspect]
     Active Substance: INSULIN GLARGINE
     Indication: TYPE 2 DIABETES MELLITUS
     Dosage: LANTUS 80 UNITS IN THE MORNING (6:30 A.M.)+ 80 UNITS @ 12:00 NOON DOSE:80 UNIT(S)
     Route: 065

REACTIONS (7)
  - Drug administration error [Unknown]
  - Poor peripheral circulation [Unknown]
  - Pain in extremity [Unknown]
  - Peripheral swelling [Unknown]
  - Coronary artery bypass [Unknown]
  - Dysstasia [Unknown]
  - Fall [Unknown]

NARRATIVE: CASE EVENT DATE: 2004
